FAERS Safety Report 8602076-4 (Version None)
Quarter: 2012Q3

REPORT INFORMATION
  Report Type: 
  Country: None (occurrence: None)
  Receive Date: 20120817
  Receipt Date: 20120803
  Transmission Date: 20120928
  Serious: Yes (Other)
  Sender: FDA-Public Use
  Company Number: US-DX529-2012DX000170

PATIENT
  Age: 69 Year
  Sex: Female
  Weight: 86.18 kg

DRUGS (11)
  1. TYLENOL (CAPLET) [Concomitant]
     Indication: PRODUCT USED FOR UNKNOWN INDICATION
  2. KALBITOR [Suspect]
     Indication: HEREDITARY ANGIOEDEMA
     Route: 058
     Dates: start: 20120426
  3. AMLODIPINE [Concomitant]
     Indication: HYPERTENSION
     Dates: start: 20110101
  4. FIRAZYR [Concomitant]
     Indication: HEREDITARY ANGIOEDEMA
     Dates: start: 20120601
  5. OMEPRAZOLE [Concomitant]
     Indication: GASTROOESOPHAGEAL REFLUX DISEASE
  6. CRESTOR [Concomitant]
     Indication: BLOOD CHOLESTEROL ABNORMAL
  7. ESTRADIOL [Concomitant]
     Indication: PRODUCT USED FOR UNKNOWN INDICATION
  8. KALBITOR [Suspect]
     Route: 058
     Dates: start: 20120728, end: 20120728
  9. BERINERT [Concomitant]
     Indication: HEREDITARY ANGIOEDEMA
     Route: 042
     Dates: start: 20120522
  10. DANAZOL [Concomitant]
     Indication: HEREDITARY ANGIOEDEMA
     Dates: start: 20120701
  11. TIROSINT [Concomitant]
     Indication: THYROID DISORDER
     Dosage: DOSE UNIT:125 MCG

REACTIONS (4)
  - ANAPHYLACTIC REACTION [None]
  - ANXIETY [None]
  - BLOOD PRESSURE INCREASED [None]
  - INJECTION SITE ERYTHEMA [None]
